FAERS Safety Report 11124268 (Version 1)
Quarter: 2015Q2

REPORT INFORMATION
  Report Type: Spontaneous
  Country: US (occurrence: US)
  Receive Date: 20150520
  Receipt Date: 20150520
  Transmission Date: 20150821
  Serious: Yes (Other)
  Sender: FDA-Public Use
  Company Number: US-AMGEN-USASP2015047137

PATIENT
  Sex: Female

DRUGS (3)
  1. MORPHINE [Suspect]
     Active Substance: MORPHINE
     Indication: BACK PAIN
     Dosage: UNK
     Route: 042
  2. MORPHINE [Suspect]
     Active Substance: MORPHINE
     Indication: PAIN
  3. NEULASTA [Suspect]
     Active Substance: PEGFILGRASTIM
     Indication: PRODUCT USED FOR UNKNOWN INDICATION
     Dosage: UNK
     Route: 065

REACTIONS (10)
  - Crying [Unknown]
  - Musculoskeletal stiffness [Unknown]
  - Pain [Unknown]
  - Myalgia [Recovered/Resolved]
  - Loss of consciousness [Unknown]
  - Back pain [Unknown]
  - Tearfulness [Unknown]
  - Mobility decreased [Unknown]
  - Feeling abnormal [Unknown]
  - Muscle spasms [Unknown]
